FAERS Safety Report 8088068-5 (Version None)
Quarter: 2012Q1

REPORT INFORMATION
  Report Type: 
  Country: None (occurrence: None)
  Receive Date: 20120128
  Receipt Date: 20110529
  Transmission Date: 20120608
  Serious: No
  Sender: FDA-Public Use
  Company Number: US-ABBOTT-11P-163-0729217-00

PATIENT
  Age: 54 Year
  Sex: Female

DRUGS (4)
  1. TRIAMTERENE AND HYDROCHLOROTHIAZIDE [Concomitant]
     Indication: HYPERTENSION
     Dosage: 37.5/25MG, DAILY
  2. METHOTREXATE [Concomitant]
     Indication: RHEUMATOID ARTHRITIS
     Dosage: 2.5MG FIVE TABLETS WEEKLY
  3. FOLIC ACID [Concomitant]
     Indication: VITAMIN SUPPLEMENTATION
     Dosage: 1MG-3 TABS DAILY
  4. HUMIRA [Suspect]
     Indication: RHEUMATOID ARTHRITIS
     Dates: start: 20110401

REACTIONS (2)
  - NAUSEA [None]
  - ABDOMINAL DISCOMFORT [None]
